FAERS Safety Report 19601860 (Version 1)
Quarter: 2021Q3

REPORT INFORMATION
  Report Type: Spontaneous
  Country: CA (occurrence: CA)
  Receive Date: 20210723
  Receipt Date: 20210723
  Transmission Date: 20211014
  Serious: Yes (Hospitalization)
  Sender: FDA-Public Use
  Company Number: CA-DRREDDYS-SPO/CAN/21/0137957

PATIENT
  Age: 75 Year
  Sex: Female

DRUGS (2)
  1. MELPHALAN. [Suspect]
     Active Substance: MELPHALAN
     Indication: PRODUCT USED FOR UNKNOWN INDICATION
  2. BORTEZOMIB FOR INJECTION 3.5 MG/VIAL [Suspect]
     Active Substance: BORTEZOMIB
     Indication: PRODUCT USED FOR UNKNOWN INDICATION

REACTIONS (4)
  - Gastrointestinal haemorrhage [Unknown]
  - Pancytopenia [Unknown]
  - Melaena [Unknown]
  - Haemoglobin decreased [Unknown]
